FAERS Safety Report 10378089 (Version 1)
Quarter: 2014Q1

REPORT INFORMATION
  Report Type: Spontaneous
  Country: US (occurrence: None)
  Receive Date: 20140306
  Receipt Date: 20140306
  Transmission Date: 20141002
  Serious: Yes (Hospitalization)
  Sender: FDA-Public Use
  Company Number: 163-21880-13014916

PATIENT
  Age: 59 Year
  Sex: Male

DRUGS (10)
  1. REVLIMID (LENALIDOMIDE) (25 MILLIGRAM, CAPSULES) [Suspect]
     Indication: PLASMA CELL MYELOMA
     Route: 048
     Dates: start: 201109
  2. FENTANYL [Concomitant]
  3. GABAPENTIN [Concomitant]
  4. WARFARIN SODIUM [Concomitant]
  5. VALACYCLOVIR [Concomitant]
  6. PREVIDENT (SODIUM FLUORIDE) [Concomitant]
  7. AMITRIPTYLLINE [Concomitant]
  8. ALPRAZOLAM [Concomitant]
  9. SULFAMETH/TRIMETHORPIM [Concomitant]
  10. COLCRYS (COLCHICINE) [Concomitant]

REACTIONS (2)
  - Fatigue [None]
  - Dehydration [None]
